FAERS Safety Report 4918243-7 (Version None)
Quarter: 2006Q1

REPORT INFORMATION
  Report Type: 
  Country: None (occurrence: None)
  Receive Date: 20060215
  Receipt Date: 20060206
  Transmission Date: 20060701
  Serious: Yes (Other)
  Sender: FDA-Public Use
  Company Number: 200514459BCC

PATIENT
  Age: 86 Year
  Sex: Female
  Weight: 63.5036 kg

DRUGS (6)
  1. ALEVE (CAPLET) [Suspect]
     Indication: MUSCLE STRAIN
     Dosage: 220 MG, BID, ORAL
     Route: 048
     Dates: start: 20051101
  2. ALEVE (CAPLET) [Suspect]
     Indication: NECK PAIN
     Dosage: 220 MG, BID, ORAL
     Route: 048
     Dates: start: 20051101
  3. ZIAC [Concomitant]
  4. MICARDIS [Concomitant]
  5. CARDURA [Concomitant]
  6. LIPITOR [Concomitant]

REACTIONS (1)
  - BLOOD PRESSURE INCREASED [None]
